FAERS Safety Report 18201093 (Version 1)
Quarter: 2020Q3

REPORT INFORMATION
  Report Type: Spontaneous
  Country: GB (occurrence: GB)
  Receive Date: 20200827
  Receipt Date: 20200827
  Transmission Date: 20201103
  Serious: Yes (Other)
  Sender: FDA-Public Use
  Company Number: GB-SA-2020SA223662

PATIENT

DRUGS (1)
  1. FEXOFENADINE HYDROCHLORIDE. [Suspect]
     Active Substance: FEXOFENADINE HYDROCHLORIDE
     Indication: URTICARIA
     Dosage: 180 MG
     Route: 048
     Dates: start: 20200724, end: 20200801

REACTIONS (6)
  - Muscle spasms [Unknown]
  - Fatigue [Unknown]
  - Decreased appetite [Unknown]
  - Apathy [Unknown]
  - Somnolence [Unknown]
  - Nausea [Not Recovered/Not Resolved]

NARRATIVE: CASE EVENT DATE: 20200729
